FAERS Safety Report 13049398 (Version 1)
Quarter: 2016Q4

REPORT INFORMATION
  Report Type: Spontaneous
  Country: US (occurrence: US)
  Receive Date: 20161220
  Receipt Date: 20161220
  Transmission Date: 20170207
  Serious: Yes (Life-Threatening, Hospitalization, Disabling)
  Sender: FDA-Public Use
  Company Number: None

PATIENT
  Age: 58 Year
  Weight: 78.75 kg

DRUGS (1)
  1. CORTISONE STEROID [Suspect]
     Active Substance: CORTISONE\HYDROCORTISONE
     Indication: PAIN
     Dosage: ?          OTHER FREQUENCY:EVERY 30 DAYS;?
     Route: 008
     Dates: start: 20151012, end: 20151126

REACTIONS (6)
  - Anxiety [None]
  - Flat affect [None]
  - Cerebrovascular accident [None]
  - Aphasia [None]
  - Amnesia [None]
  - Diabetic ketoacidosis [None]

NARRATIVE: CASE EVENT DATE: 20161207
